FAERS Safety Report 19774354 (Version 1)
Quarter: 2021Q3

REPORT INFORMATION
  Report Type: Report from Study
  Country: FR (occurrence: FR)
  Receive Date: 20210901
  Receipt Date: 20210901
  Transmission Date: 20211014
  Serious: Yes (Hospitalization)
  Sender: FDA-Public Use
  Company Number: FR-VERTEX PHARMACEUTICALS-2021-011310

PATIENT
  Age: 32 Year
  Sex: Male

DRUGS (25)
  1. MAGNESIUM SULFATE. [Concomitant]
     Active Substance: MAGNESIUM SULFATE
     Dosage: 3 GRAM/24 HOURS
     Dates: start: 20210607
  2. XANAX [Concomitant]
     Active Substance: ALPRAZOLAM
     Dosage: 0.25MG TABLET
     Route: 048
     Dates: start: 20210607
  3. BRICANYL [Concomitant]
     Active Substance: TERBUTALINE SULFATE
     Dosage: UNK
     Dates: start: 20210607
  4. ATARAX [Concomitant]
     Active Substance: HYDROXYZINE HYDROCHLORIDE
     Dosage: 50 MILLIGRAM
     Route: 042
     Dates: start: 20210607
  5. EUPRESSYL [URAPIDIL] [Concomitant]
     Active Substance: URAPIDIL
     Dosage: 60MG CAPSULE
     Route: 048
     Dates: start: 20210607
  6. LASILIX [FUROSEMIDE] [Concomitant]
     Active Substance: FUROSEMIDE
     Dosage: 20 MG, EVERY 08 HOURS
     Route: 042
     Dates: start: 20210607
  7. GLUCOSE [Concomitant]
     Active Substance: DEXTROSE
     Dosage: UNK
     Dates: start: 20210607
  8. PHOCYTAN [Concomitant]
     Active Substance: .ALPHA.-GLUCOSE-1-PHOSPHATE
     Dosage: UNK
     Dates: start: 20210607
  9. LANSOPRAZOLE. [Concomitant]
     Active Substance: LANSOPRAZOLE
     Dosage: UNK
     Dates: start: 20210607
  10. ZITHROMAX [Concomitant]
     Active Substance: AZITHROMYCIN DIHYDRATE
     Dosage: 250MG TABLET
     Route: 048
     Dates: start: 20210607
  11. KAFTRIO [Suspect]
     Active Substance: ELEXACAFTOR\IVACAFTOR\TEZACAFTOR
     Indication: CYSTIC FIBROSIS
     Dosage: 2 TABLETS IN MORNING
     Route: 048
     Dates: start: 20210607, end: 20210607
  12. KALYDECO [Suspect]
     Active Substance: IVACAFTOR
     Indication: CYSTIC FIBROSIS
     Dosage: 1 TABLET IN EVENING
     Route: 048
     Dates: start: 20210722
  13. AMLOR [Concomitant]
     Active Substance: AMLODIPINE BESYLATE
     Dosage: 5MG TABLET
     Route: 048
     Dates: start: 20210607
  14. LANSOPRAZOLE. [Concomitant]
     Active Substance: LANSOPRAZOLE
     Dosage: 30MG TABLET
     Route: 048
     Dates: start: 20210607
  15. CALCIUM FOLINATE [Concomitant]
     Active Substance: LEUCOVORIN CALCIUM
     Dosage: UNK
     Dates: start: 20210607
  16. CHOLURSO [Concomitant]
     Active Substance: URSODIOL
     Dosage: 500 MG
     Route: 048
     Dates: start: 20210607
  17. MERONEM [Concomitant]
     Active Substance: MEROPENEM
     Dosage: EVERY 08 HOURS
     Route: 042
     Dates: start: 20210607
  18. PARACETAMOL [Concomitant]
     Active Substance: ACETAMINOPHEN
     Dosage: UNK
     Route: 042
     Dates: start: 20210607
  19. ZOPHREN [ONDANSETRON] [Concomitant]
     Active Substance: ONDANSETRON
     Dosage: 4 MG TABLET, MAX DOSE PER 24H: 16MG
     Route: 048
     Dates: start: 20210607
  20. SELENIUM [Concomitant]
     Active Substance: SELENIUM
     Dosage: 100 MICROGRAM
     Dates: start: 20210607
  21. AZACTAM [Concomitant]
     Active Substance: AZTREONAM
     Dosage: 1 G/VIAL, 8G/DAY
     Route: 042
     Dates: start: 20210607
  22. LOXEN [NICARDIPINE HYDROCHLORIDE] [Concomitant]
     Active Substance: NICARDIPINE HYDROCHLORIDE
     Dosage: UNK
     Route: 042
     Dates: start: 20210607
  23. KAFTRIO [Suspect]
     Active Substance: ELEXACAFTOR\IVACAFTOR\TEZACAFTOR
     Dosage: 2 TABLETS IN MORNING
     Route: 048
     Dates: start: 20210722
  24. VITAMIN K [Concomitant]
     Active Substance: PHYTONADIONE
     Dosage: UNK
     Dates: start: 20210607
  25. CREON [Concomitant]
     Active Substance: PANCRELIPASE AMYLASE\PANCRELIPASE LIPASE\PANCRELIPASE PROTEASE
     Dosage: 10,000 IU
     Route: 048
     Dates: start: 20210607

REACTIONS (1)
  - Haemoptysis [Recovered/Resolved]

NARRATIVE: CASE EVENT DATE: 20210607
